FAERS Safety Report 6509232-X (Version None)
Quarter: 2009Q4

REPORT INFORMATION
  Report Type: 
  Country: None (occurrence: None)
  Receive Date: 20091222
  Receipt Date: 20091218
  Transmission Date: 20100525
  Serious: Yes (Other)
  Sender: FDA-Public Use
  Company Number: US-ASTRAZENECA-2009SE21570

PATIENT
  Age: 18166 Day
  Sex: Male
  Weight: 114.3 kg

DRUGS (6)
  1. SEROQUEL [Suspect]
     Indication: BIPOLAR DISORDER
     Dosage: 100-400 MG
     Route: 048
     Dates: start: 20050301
  2. GEODON [Concomitant]
     Dates: start: 20070101
  3. RISPERDAL [Concomitant]
     Dates: start: 20030101
  4. PAXIL [Concomitant]
     Dates: start: 20020101, end: 20090101
  5. XANAX [Concomitant]
     Dates: start: 20020101
  6. TRAZODONE HCL [Concomitant]
     Dates: start: 20030101

REACTIONS (2)
  - ROAD TRAFFIC ACCIDENT [None]
  - TYPE 2 DIABETES MELLITUS [None]
